FAERS Safety Report 20785198 (Version 1)
Quarter: 2022Q2

REPORT INFORMATION
  Report Type: Spontaneous
  Country: US (occurrence: None)
  Receive Date: 20220504
  Receipt Date: 20220504
  Transmission Date: 20220721
  Serious: Yes (Other)
  Sender: FDA-Public Use
  Company Number: None

PATIENT
  Age: 4 Year
  Sex: Male
  Weight: 18.9 kg

DRUGS (2)
  1. CHILDREN CLARITIN ALLERGY [Suspect]
     Active Substance: LORATADINE
     Indication: Cough
     Dosage: OTHER QUANTITY : 1 TABLESPOON(S);?
     Route: 048
     Dates: start: 20220427
  2. Antibiotics amoxacillian [Concomitant]

REACTIONS (1)
  - Dysphemia [None]

NARRATIVE: CASE EVENT DATE: 20220430
